FAERS Safety Report 11989158 (Version 6)
Quarter: 2016Q1

REPORT INFORMATION
  Report Type: Spontaneous
  Country: US (occurrence: US)
  Receive Date: 20160202
  Receipt Date: 20160229
  Transmission Date: 20160526
  Serious: Yes (Hospitalization)
  Sender: FDA-Public Use
  Company Number: US-009507513-1601USA011556

PATIENT
  Age: 3 Year
  Sex: Male

DRUGS (2)
  1. CUBICIN [Suspect]
     Active Substance: DAPTOMYCIN
     Indication: MENINGITIS ENTEROCOCCAL
     Dosage: 12 MG/KG, QD
     Route: 042
     Dates: start: 20150124
  2. TIGECYCLINE. [Concomitant]
     Active Substance: TIGECYCLINE

REACTIONS (4)
  - Overdose [Unknown]
  - Oxygen supplementation [Recovered/Resolved]
  - Product use issue [Unknown]
  - Drug ineffective for unapproved indication [Unknown]

NARRATIVE: CASE EVENT DATE: 20150124
